FAERS Safety Report 17285186 (Version 1)
Quarter: 2020Q1

REPORT INFORMATION
  Report Type: Spontaneous
  Country: DE (occurrence: DE)
  Receive Date: 20200117
  Receipt Date: 20200117
  Transmission Date: 20200409
  Serious: Yes (Other)
  Sender: FDA-Public Use
  Company Number: DE-MYLANLABS-2020M1004714

PATIENT
  Age: 41 Year
  Sex: Female

DRUGS (2)
  1. LEVOFLOXACIN. [Suspect]
     Active Substance: LEVOFLOXACIN
     Indication: PRODUCT USED FOR UNKNOWN INDICATION
     Dosage: 2 DF, QD
     Route: 065
     Dates: start: 20091025, end: 20091030
  2. SALMETEROL [Suspect]
     Active Substance: SALMETEROL
     Indication: PRODUCT USED FOR UNKNOWN INDICATION
     Dosage: 2 DF, QD  25/50
     Route: 065
     Dates: start: 20091025

REACTIONS (25)
  - Tendonitis [Unknown]
  - Visual impairment [Unknown]
  - Fibromyalgia [Unknown]
  - Irritable bowel syndrome [Unknown]
  - Dizziness [Unknown]
  - Arrhythmia [Unknown]
  - Blood pressure fluctuation [Unknown]
  - Vertigo [Unknown]
  - Tendon disorder [Unknown]
  - Polyneuropathy [Unknown]
  - Depression [Unknown]
  - Fear of death [Unknown]
  - Nervous system disorder [Unknown]
  - Histamine intolerance [Unknown]
  - Gait disturbance [Unknown]
  - Hypoacusis [Unknown]
  - Hypoglycaemia [Unknown]
  - Palpitations [Unknown]
  - Joint stiffness [Unknown]
  - Discomfort [Unknown]
  - Epigastric discomfort [Unknown]
  - Taste disorder [Unknown]
  - Bladder irritation [Unknown]
  - Fatigue [Unknown]
  - Malaise [Unknown]

NARRATIVE: CASE EVENT DATE: 20091025
